FAERS Safety Report 23075926 (Version 1)
Quarter: 2023Q4

REPORT INFORMATION
  Report Type: Spontaneous
  Country: US (occurrence: US)
  Receive Date: 20231017
  Receipt Date: 20231017
  Transmission Date: 20240110
  Serious: Yes (Life-Threatening, Hospitalization, Other)
  Sender: FDA-Public Use
  Company Number: US-SUN PHARMACEUTICAL INDUSTRIES LTD-2023R1-412698

PATIENT
  Age: 35 Year
  Sex: Female

DRUGS (1)
  1. BUPROPION [Suspect]
     Active Substance: BUPROPION
     Indication: Product used for unknown indication
     Dosage: UNK (30 TABLETS)
     Route: 048

REACTIONS (5)
  - Intentional overdose [Unknown]
  - Toxicity to various agents [Unknown]
  - Ventricular tachycardia [Recovered/Resolved]
  - Cardiogenic shock [Recovered/Resolved]
  - Seizure [Recovered/Resolved]
